FAERS Safety Report 6501616-9 (Version None)
Quarter: 2009Q4

REPORT INFORMATION
  Report Type: 
  Country: None (occurrence: None)
  Receive Date: 20091127
  Receipt Date: 20090522
  Transmission Date: 20100525
  Serious: Yes (Other)
  Sender: FDA-Public Use
  Company Number: WAES 0706USA00971

PATIENT
  Age: 49 Year
  Sex: Female

DRUGS (4)
  1. FOSAMAX [Suspect]
     Indication: OSTEOPOROSIS
     Dosage: 70 MG/PO;10 MG/DAILY/PO
     Route: 048
     Dates: start: 20030401, end: 20060401
  2. FOSAMAX [Suspect]
     Indication: OSTEOPOROSIS
     Dosage: 70 MG/PO;10 MG/DAILY/PO
     Route: 048
     Dates: start: 20030411
  3. CORTICOSTEROIDS [Concomitant]
  4. HORMONES [Concomitant]

REACTIONS (9)
  - ABSCESS [None]
  - ADVERSE EVENT [None]
  - DENTAL CARIES [None]
  - EMPHYSEMA [None]
  - FIBROMYALGIA [None]
  - HYPOAESTHESIA ORAL [None]
  - OSTEONECROSIS [None]
  - TOOTH ABSCESS [None]
  - TOOTH LOSS [None]
